FAERS Safety Report 6025549-X (Version None)
Quarter: 2008Q4

REPORT INFORMATION
  Report Type: 
  Country: None (occurrence: None)
  Receive Date: 20081224
  Receipt Date: 20081217
  Transmission Date: 20090506
  Serious: Yes (Life-Threatening)
  Sender: FDA-Public Use
  Company Number: 2008US003462

PATIENT
  Age: 14 Year
  Sex: Male

DRUGS (18)
  1. AMBISOME [Suspect]
     Indication: BRONCHOPULMONARY ASPERGILLOSIS
     Dosage: 350 MG, UID/QD, IV NOS
     Route: 042
     Dates: start: 20080909, end: 20080924
  2. VFEND [Suspect]
     Indication: BRONCHOPULMONARY ASPERGILLOSIS
     Dosage: 400 MG, UID/QD, IV NOS
     Route: 042
     Dates: start: 20080917, end: 20080924
  3. DOPAMINE HYDROCHLORIDE [Concomitant]
  4. MEROPEN (MEROPENEM TRIHYDRATE) [Concomitant]
  5. AMIKACIN SULFATE [Concomitant]
  6. VANCOMYCIN HYDROCHLORIDE [Concomitant]
  7. RED BLOOD CELLS [Concomitant]
  8. PLATELETS [Concomitant]
  9. IMMUNE GLOBULIN INTRAVENOUS (HUMAN) [Concomitant]
  10. NEUTROGIN (LENOGRASTIM) [Concomitant]
  11. FOY (GABEXATE MESILATE) [Concomitant]
  12. ALBUMIN (HUMAN) [Concomitant]
  13. HABEKACIN (ARBEKACIN SULFATE) [Concomitant]
  14. FUNGUARD (MICAFUNGIN) [Concomitant]
  15. FIRSTCIN (CEFOZOPRAN HYDROCHLORIDE) [Concomitant]
  16. BLOOD AND RELATED PRODUCTS [Concomitant]
  17. CEFTAZIDIME [Concomitant]
  18. HAPTOGLOBINS (HAPTOLOBINS) [Concomitant]

REACTIONS (9)
  - ACUTE LYMPHOCYTIC LEUKAEMIA [None]
  - BLOOD POTASSIUM DECREASED [None]
  - BRONCHOPULMONARY ASPERGILLOSIS [None]
  - CONDITION AGGRAVATED [None]
  - NO THERAPEUTIC RESPONSE [None]
  - OLIGURIA [None]
  - RESPIRATORY FAILURE [None]
  - VENTRICULAR EXTRASYSTOLES [None]
  - VENTRICULAR TACHYCARDIA [None]
